FAERS Safety Report 10087048 (Version 3)
Quarter: 2014Q2

REPORT INFORMATION
  Report Type: Spontaneous
  Country: US (occurrence: US)
  Receive Date: 20140418
  Receipt Date: 20140523
  Transmission Date: 20141212
  Serious: Yes (Other)
  Sender: FDA-Public Use
  Company Number: US-TEVA-476605USA

PATIENT
  Age: 28 Year
  Sex: Female
  Weight: 70.37 kg

DRUGS (1)
  1. PARAGARD 380A [Suspect]
     Indication: CONTRACEPTION
     Route: 015
     Dates: start: 20121119, end: 20140409

REACTIONS (4)
  - Pregnancy with contraceptive device [Unknown]
  - Drug ineffective [Unknown]
  - Menstruation delayed [Not Recovered/Not Resolved]
  - Abdominal pain [Recovered/Resolved]
